FAERS Safety Report 14068481 (Version 5)
Quarter: 2018Q3

REPORT INFORMATION
  Report Type: Spontaneous
  Country: US (occurrence: US)
  Receive Date: 20171010
  Receipt Date: 20180815
  Transmission Date: 20181010
  Serious: Yes (Hospitalization, Other)
  Sender: FDA-Public Use
  Company Number: US-PFIZER INC-2017430695

PATIENT
  Age: 60 Year
  Sex: Female
  Weight: 99 kg

DRUGS (3)
  1. XELJANZ XR [Suspect]
     Active Substance: TOFACITINIB CITRATE
     Indication: FIBROMYALGIA
     Dosage: 11 MG, UNK
     Dates: end: 201807
  2. XELJANZ XR [Suspect]
     Active Substance: TOFACITINIB CITRATE
     Indication: RHEUMATOID ARTHRITIS
     Dosage: 11 MG, 1X/DAY
     Route: 048
     Dates: start: 201708, end: 20180614
  3. GABAPENTIN. [Concomitant]
     Active Substance: GABAPENTIN
     Indication: PARAESTHESIA
     Dosage: 300 MG, UNK
     Dates: start: 2016

REACTIONS (10)
  - Lumbar spinal stenosis [Unknown]
  - Drug effect incomplete [Unknown]
  - Stenosis [Unknown]
  - Intervertebral disc protrusion [Unknown]
  - Energy increased [Unknown]
  - Fall [Unknown]
  - Ataxia [Unknown]
  - Head injury [Unknown]
  - Neuropathy peripheral [Unknown]
  - Pain [Not Recovered/Not Resolved]

NARRATIVE: CASE EVENT DATE: 2017
